FAERS Safety Report 6374438-X (Version None)
Quarter: 2009Q3

REPORT INFORMATION
  Report Type: 
  Country: None (occurrence: None)
  Receive Date: 20090924
  Receipt Date: 20090910
  Transmission Date: 20100115
  Serious: Yes (Other)
  Sender: FDA-Public Use
  Company Number: US-PFIZER INC-2009260661

PATIENT
  Sex: Male
  Weight: 78.005 kg

DRUGS (3)
  1. GEODON [Suspect]
     Dosage: 40 MG, DAILY
     Route: 048
     Dates: start: 20090801, end: 20090801
  2. ZYPREXA [Concomitant]
     Indication: BIPOLAR DISORDER
     Dosage: 5 MG, 1X/DAY
     Route: 048
     Dates: end: 20090801
  3. CETIRIZINE [Concomitant]

REACTIONS (7)
  - AGITATION [None]
  - DISTURBANCE IN ATTENTION [None]
  - HEADACHE [None]
  - INSOMNIA [None]
  - NAUSEA [None]
  - NERVOUSNESS [None]
  - THINKING ABNORMAL [None]
